FAERS Safety Report 8472227-3 (Version None)
Quarter: 2012Q2

REPORT INFORMATION
  Report Type: 
  Country: None (occurrence: None)
  Receive Date: 20120627
  Receipt Date: 20120615
  Transmission Date: 20120825
  Serious: Yes (Other)
  Sender: FDA-Public Use
  Company Number: US-ELI_LILLY_AND_COMPANY-US201108008151

PATIENT
  Sex: Female

DRUGS (23)
  1. CALCIUM + VITAMIN D [Concomitant]
     Dosage: 500 MG, TID
  2. SYMBICORT [Concomitant]
  3. ROPINIROLE [Concomitant]
     Indication: RESTLESS LEGS SYNDROME
     Dosage: 1 MG, BID
  4. LOVAZA [Concomitant]
     Dosage: UNK, QD
  5. FLAXSEED OIL [Concomitant]
     Dosage: 1300 MG, QD
  6. VITAMIN D [Concomitant]
     Dosage: 2000 IU, QD
  7. FORTEO [Suspect]
     Dosage: 20 UG, QD
  8. OMEPRAZOLE [Concomitant]
     Dosage: 20 MG, BID
  9. FORTEO [Suspect]
     Indication: OSTEOPOROSIS POSTMENOPAUSAL
     Dosage: 20 UG, QD
     Route: 065
  10. OXYGEN [Concomitant]
     Indication: PULMONARY ARTERIAL HYPERTENSION
  11. LEVOTHYROXINE [Concomitant]
     Indication: THYROID DISORDER
     Dosage: 25 UG, QD
  12. GLUCOSAMINE CHONDROITIN [Concomitant]
     Dosage: 1500 MG, BID
  13. MULTI-VITAMIN [Concomitant]
     Dosage: UNK, QD
  14. SINGULAIR [Concomitant]
     Dosage: 10 MG, QD
  15. FUROSEMIDE [Concomitant]
     Indication: JOINT SWELLING
     Dosage: 40 MG, OTHER
  16. POTASSIUM CHLORIDE [Concomitant]
     Dosage: 10 MEQ, QD
  17. FORTEO [Suspect]
     Dosage: 20 UG, QD
  18. TRACLEER [Concomitant]
     Dosage: 125 MG, QD
  19. FERROUS SULFATE TAB [Concomitant]
     Indication: ANAEMIA
     Dosage: 325 MG, BID
  20. FORTEO [Suspect]
     Dosage: 20 UG, QD
  21. GABAPENTIN [Concomitant]
     Dosage: 400 MG, BID
  22. TRENTAL [Concomitant]
     Dosage: 400 MG, TID
  23. ENALAPRIL MALEATE [Concomitant]
     Indication: BLOOD PRESSURE
     Dosage: 5 MG, QD

REACTIONS (7)
  - MEMORY IMPAIRMENT [None]
  - INJECTION SITE DISCOMFORT [None]
  - OVERDOSE [None]
  - PULMONARY HYPERTENSION [None]
  - TERMINAL STATE [None]
  - DYSPNOEA [None]
  - TOTAL LUNG CAPACITY DECREASED [None]
